FAERS Safety Report 5968678-9 (Version None)
Quarter: 2008Q4

REPORT INFORMATION
  Report Type: 
  Country: None (occurrence: None)
  Receive Date: 20081121
  Receipt Date: 20081121
  Transmission Date: 20090506
  Serious: Yes (Other)
  Sender: FDA-Public Use
  Company Number: None

PATIENT
  Age: 76 Year
  Sex: Female
  Weight: 83.9154 kg

DRUGS (1)
  1. PLAVIX [Suspect]
     Indication: ANGIOPLASTY
     Dosage: 75MG DAILY PO
     Route: 048
     Dates: start: 20081024, end: 20081025

REACTIONS (3)
  - RASH MACULAR [None]
  - SKIN BURNING SENSATION [None]
  - SKIN EXFOLIATION [None]
